FAERS Safety Report 11330872 (Version 2)
Quarter: 2015Q4

REPORT INFORMATION
  Report Type: Spontaneous
  Country: US (occurrence: US)
  Receive Date: 20150803
  Receipt Date: 20151002
  Transmission Date: 20160304
  Serious: No
  Sender: FDA-Public Use
  Company Number: US-GLAXOSMITHKLINE-US2015GSK107717

PATIENT
  Sex: Male
  Weight: 107.3 kg

DRUGS (11)
  1. LISINOPRIL. [Concomitant]
     Active Substance: LISINOPRIL
  2. VOTRIENT [Suspect]
     Active Substance: PAZOPANIB HYDROCHLORIDE
     Dosage: 200 MG, QD
     Route: 048
     Dates: start: 20150422
  3. SODIUM POLYSTYRENE SULFONATE. [Concomitant]
     Active Substance: SODIUM POLYSTYRENE SULFONATE
  4. VOTRIENT [Suspect]
     Active Substance: PAZOPANIB HYDROCHLORIDE
     Indication: RENAL CANCER
     Dosage: 200 MG, QD
     Route: 048
     Dates: start: 20141128, end: 20150422
  5. TRADJENTA [Concomitant]
     Active Substance: LINAGLIPTIN
  6. TAMSULOSIN [Concomitant]
     Active Substance: TAMSULOSIN
  7. LYRICA [Concomitant]
     Active Substance: PREGABALIN
  8. DESLORATADINE. [Concomitant]
     Active Substance: DESLORATADINE
  9. ZETIA [Concomitant]
     Active Substance: EZETIMIBE
  10. CEPHALEXIN. [Concomitant]
     Active Substance: CEPHALEXIN
  11. MONTELUKAST [Concomitant]
     Active Substance: MONTELUKAST SODIUM

REACTIONS (5)
  - Adverse event [Unknown]
  - Surgery [Recovered/Resolved]
  - Diarrhoea [Unknown]
  - Therapy cessation [Unknown]
  - Abdominal pain [Unknown]
